FAERS Safety Report 4282964-2 (Version None)
Quarter: 2004Q1

REPORT INFORMATION
  Report Type: 
  Country: None (occurrence: None)
  Receive Date: 20040130
  Receipt Date: 20040121
  Transmission Date: 20041129
  Serious: Yes (Other)
  Sender: FDA-Public Use
  Company Number: PHBS2004NL01210

PATIENT
  Sex: Female

DRUGS (1)
  1. LEPONEX [Suspect]
     Route: 047

REACTIONS (4)
  - MUSCLE CONTRACTIONS INVOLUNTARY [None]
  - OXYGEN SATURATION DECREASED [None]
  - SLEEP APNOEA SYNDROME [None]
  - SOMNOLENCE [None]
